FAERS Safety Report 11544859 (Version 1)
Quarter: 2015Q3

REPORT INFORMATION
  Report Type: Spontaneous
  Country: US (occurrence: US)
  Receive Date: 20150924
  Receipt Date: 20150924
  Transmission Date: 20151125
  Serious: No
  Sender: FDA-Public Use
  Company Number: US-BAYER-2015-428149

PATIENT
  Age: 76 Year
  Sex: Male
  Weight: 86.17 kg

DRUGS (1)
  1. ALEVE PM [Suspect]
     Active Substance: DIPHENHYDRAMINE HYDROCHLORIDE\NAPROXEN SODIUM
     Dosage: 2 DF, QD
     Route: 048
     Dates: start: 20150916, end: 20150917

REACTIONS (1)
  - Insomnia [None]

NARRATIVE: CASE EVENT DATE: 20150916
